FAERS Safety Report 15323655 (Version 2)
Quarter: 2018Q4

REPORT INFORMATION
  Report Type: Spontaneous
  Country: GB (occurrence: GB)
  Receive Date: 20180827
  Receipt Date: 20181025
  Transmission Date: 20190204
  Serious: Yes (Other)
  Sender: FDA-Public Use
  Company Number: GB-BAXTER-2018BAX022115

PATIENT
  Age: 40 Year
  Sex: Female
  Weight: 52 kg

DRUGS (4)
  1. DAKTARIN [Concomitant]
     Active Substance: MICONAZOLE NITRATE
     Indication: PRODUCT USED FOR UNKNOWN INDICATION
     Dosage: APPLY
     Route: 065
     Dates: start: 20180524, end: 20180525
  2. LOESTRIN NOS [Concomitant]
     Active Substance: ETHINYL ESTRADIOL\NORETHINDRONE ACETATE
     Indication: PRODUCT USED FOR UNKNOWN INDICATION
     Dosage: TAKE ONE AS DIRECTED
     Route: 065
     Dates: start: 20180709
  3. PREDNISOLONE. [Concomitant]
     Active Substance: PREDNISOLONE
     Indication: PRODUCT USED FOR UNKNOWN INDICATION
     Dosage: FOR 3 DAYS
     Route: 065
     Dates: start: 20180802
  4. FLUCONAZOLE 2 MG/ML SOLUTION FOR INFUSION [Suspect]
     Active Substance: FLUCONAZOLE
     Indication: PRODUCT USED FOR UNKNOWN INDICATION
     Route: 065
     Dates: start: 20180802

REACTIONS (5)
  - Swollen tongue [Recovering/Resolving]
  - Rash erythematous [Unknown]
  - Oral pain [Unknown]
  - Lip swelling [Recovering/Resolving]
  - Facial pain [Unknown]

NARRATIVE: CASE EVENT DATE: 20180802
